FAERS Safety Report 6172769-X (Version None)
Quarter: 2009Q2

REPORT INFORMATION
  Report Type: 
  Country: None (occurrence: None)
  Receive Date: 20090428
  Receipt Date: 20090414
  Transmission Date: 20091009
  Serious: Yes (Death, Hospitalization)
  Sender: FDA-Public Use
  Company Number: 2009-01472

PATIENT
  Age: 66 Year
  Sex: Female

DRUGS (2)
  1. VELCADE [Suspect]
     Indication: MULTIPLE MYELOMA
     Dosage: 3.5 MG,
     Dates: start: 20090119, end: 20090129
  2. DEXAMETHASONE TAB [Suspect]
     Dates: start: 20090119, end: 20090129

REACTIONS (11)
  - BACTERIA STOOL IDENTIFIED [None]
  - BLOOD LACTIC ACID INCREASED [None]
  - DIARRHOEA [None]
  - FALL [None]
  - HYPERKALAEMIA [None]
  - HYPERPHOSPHATAEMIA [None]
  - HYPOCALCAEMIA [None]
  - ILEUS PARALYTIC [None]
  - MALAISE [None]
  - PYREXIA [None]
  - RIB FRACTURE [None]
